FAERS Safety Report 9741789 (Version 1)
Quarter: 2013Q4

REPORT INFORMATION
  Report Type: Spontaneous
  Country: CA (occurrence: CA)
  Receive Date: 20131210
  Receipt Date: 20131210
  Transmission Date: 20140711
  Serious: Yes (Disabling, Other)
  Sender: FDA-Public Use
  Company Number: CA-ROCHE-1312109

PATIENT
  Age: 15 Year
  Sex: Female

DRUGS (3)
  1. NAPROXEN [Suspect]
     Indication: PRODUCT USED FOR UNKNOWN INDICATION
     Route: 065
  2. ZOLOFT [Suspect]
     Indication: PRODUCT USED FOR UNKNOWN INDICATION
     Dosage: FREQUENCY + THERAPY DURATION: ONCE
     Route: 065
  3. ZOLOFT [Suspect]
     Route: 065

REACTIONS (11)
  - Asthenia [Recovered/Resolved]
  - Condition aggravated [Recovered/Resolved]
  - Petit mal epilepsy [Recovered/Resolved]
  - Confusional state [Recovered/Resolved]
  - Drug dose omission [Unknown]
  - Drug hypersensitivity [Recovered/Resolved]
  - Feeling abnormal [Recovered/Resolved]
  - Migraine [Recovered/Resolved]
  - Nausea [Recovered/Resolved]
  - Vertigo [Recovered/Resolved]
  - Withdrawal syndrome [Unknown]
